FAERS Safety Report 6861345-9 (Version None)
Quarter: 2010Q3

REPORT INFORMATION
  Report Type: 
  Country: None (occurrence: None)
  Receive Date: 20100715
  Receipt Date: 20100709
  Transmission Date: 20110219
  Serious: Yes (Life-Threatening)
  Sender: FDA-Public Use
  Company Number: TCI2010A02675

PATIENT
  Age: 71 Year
  Sex: Male

DRUGS (8)
  1. ACTOS [Suspect]
     Indication: TYPE 2 DIABETES MELLITUS
     Dosage: 30 MG (30 MG, 1 D), PER ORAL
     Route: 048
     Dates: start: 20081216
  2. SULFONAMIDES, UREA DERIVATIVES [Concomitant]
  3. BIGUANIDES [Concomitant]
  4. ANTIHYPERTENSIVES [Concomitant]
  5. CALCIUM CHANNEL BLOCKERS [Concomitant]
  6. ANGIOTENSIN II ANTAGONISTS [Concomitant]
  7. HMG COA REDUCTASE INHIBITORS [Concomitant]
  8. ANTIOGOUT PREPARATIONS [Concomitant]

REACTIONS (2)
  - ANGINA PECTORIS [None]
  - INSOMNIA [None]
